FAERS Safety Report 16658911 (Version 1)
Quarter: 2019Q3

REPORT INFORMATION
  Report Type: Spontaneous
  Country: ES (occurrence: ES)
  Receive Date: 20190801
  Receipt Date: 20190801
  Transmission Date: 20191004
  Serious: Yes (Other)
  Sender: FDA-Public Use
  Company Number: PHHY2019ES174236

PATIENT
  Age: 66 Year
  Sex: Male

DRUGS (5)
  1. OXYCODONE+NALOXONE SANDOZ [Suspect]
     Active Substance: NALOXONE HYDROCHLORIDE\OXYCODONE HYDROCHLORIDE
     Indication: BONE PAIN
     Dosage: 30 MG, QD (15 MG, Q12H(10+5 MG))
     Route: 065
     Dates: start: 201701
  2. IBUPROFEN. [Suspect]
     Active Substance: IBUPROFEN
     Indication: BONE PAIN
     Dosage: 1200 MG, QD
     Route: 065
     Dates: start: 201701
  3. BUPRENORPHINE. [Suspect]
     Active Substance: BUPRENORPHINE
     Indication: BONE PAIN
     Dosage: UNK
     Route: 065
  4. PREGABALIN. [Suspect]
     Active Substance: PREGABALIN
     Indication: BONE PAIN
     Dosage: 300 MG, QD
     Route: 065
     Dates: start: 201701
  5. MORPHINE [Suspect]
     Active Substance: MORPHINE
     Indication: BREAKTHROUGH PAIN
     Dosage: 10 MG (4-5 MORPHINE RESCUES), UNKJ
     Route: 065

REACTIONS (4)
  - Neurotoxicity [Recovering/Resolving]
  - Off label use [Unknown]
  - Somnolence [Recovering/Resolving]
  - Disorientation [Recovering/Resolving]

NARRATIVE: CASE EVENT DATE: 201701
